FAERS Safety Report 4874850-1 (Version None)
Quarter: 2006Q1

REPORT INFORMATION
  Report Type: 
  Country: None (occurrence: None)
  Receive Date: 20060104
  Receipt Date: 20051219
  Transmission Date: 20060701
  Serious: Yes (Other)
  Sender: FDA-Public Use
  Company Number: 2005173525

PATIENT
  Age: 29 Year
  Sex: Male

DRUGS (1)
  1. VIAGRA [Suspect]

REACTIONS (4)
  - DIZZINESS [None]
  - FEELING ABNORMAL [None]
  - PHOTOPHOBIA [None]
  - SCINTILLATING SCOTOMA [None]
